FAERS Safety Report 12910259 (Version 1)
Quarter: 2016Q4

REPORT INFORMATION
  Report Type: Spontaneous
  Country: US (occurrence: US)
  Receive Date: 20161102
  Receipt Date: 20161102
  Transmission Date: 20170207
  Serious: Yes (Hospitalization)
  Sender: FDA-Public Use
  Company Number: None

PATIENT
  Age: 71 Year
  Sex: Male
  Weight: 78.9 kg

DRUGS (1)
  1. APIXABAN [Suspect]
     Active Substance: APIXABAN
     Indication: ATRIAL FIBRILLATION
     Route: 048
     Dates: start: 20161007, end: 20161017

REACTIONS (6)
  - Large intestine polyp [None]
  - Gastric haemorrhage [None]
  - Diverticulum [None]
  - Rectal haemorrhage [None]
  - Gastrointestinal neoplasm [None]
  - Gastrointestinal mucosal disorder [None]

NARRATIVE: CASE EVENT DATE: 20161017
